FAERS Safety Report 25213140 (Version 1)
Quarter: 2025Q2

REPORT INFORMATION
  Report Type: Spontaneous
  Country: CN (occurrence: CN)
  Receive Date: 20250418
  Receipt Date: 20250418
  Transmission Date: 20250717
  Serious: Yes (Other)
  Sender: PFIZER
  Company Number: CN-PFIZER INC-202500076656

PATIENT
  Age: 58 Year
  Sex: Female

DRUGS (3)
  1. CYTARABINE [Suspect]
     Active Substance: CYTARABINE
     Indication: Acute myeloid leukaemia
     Dates: start: 20241206, end: 20241212
  2. MITOXANTRONE [Suspect]
     Active Substance: MITOXANTRONE HYDROCHLORIDE
     Dates: start: 20241206, end: 20241206
  3. MITOXANTRONE [Suspect]
     Active Substance: MITOXANTRONE HYDROCHLORIDE
     Dates: start: 20241207, end: 20241208

REACTIONS (5)
  - Myelosuppression [Recovering/Resolving]
  - Secondary immunodeficiency [Recovering/Resolving]
  - Pyrexia [Recovering/Resolving]
  - Oral infection [Recovering/Resolving]
  - Gingivitis [Recovering/Resolving]

NARRATIVE: CASE EVENT DATE: 20241225
